FAERS Safety Report 7798725-3 (Version None)
Quarter: 2011Q4

REPORT INFORMATION
  Report Type: 
  Country: None (occurrence: None)
  Receive Date: 20111006
  Receipt Date: 20110927
  Transmission Date: 20120403
  Serious: No
  Sender: FDA-Public Use
  Company Number: US-BIOGENIDEC-2011BI036983

PATIENT
  Age: 58 Year
  Sex: Female

DRUGS (1)
  1. AVONEX [Suspect]
     Indication: MULTIPLE SCLEROSIS
     Route: 030
     Dates: start: 20110609

REACTIONS (6)
  - NASOPHARYNGITIS [None]
  - SINUS HEADACHE [None]
  - BODY TEMPERATURE INCREASED [None]
  - TREMOR [None]
  - CHILLS [None]
  - RHINORRHOEA [None]
